FAERS Safety Report 20242692 (Version 1)
Quarter: 2021Q4

REPORT INFORMATION
  Report Type: Report from Study
  Country: US (occurrence: US)
  Receive Date: 20211228
  Receipt Date: 20211228
  Transmission Date: 20220303
  Serious: Yes (Hospitalization)
  Sender: FDA-Public Use
  Company Number: US-DUCHESNAY-2021US000202

PATIENT
  Sex: Female

DRUGS (1)
  1. OSPEMIFENE [Suspect]
     Active Substance: OSPEMIFENE
     Indication: Product used for unknown indication

REACTIONS (1)
  - Pneumonia [Unknown]
